FAERS Safety Report 9772930 (Version 2)
Quarter: 2014Q1

REPORT INFORMATION
  Report Type: Spontaneous
  Country: CH (occurrence: None)
  Receive Date: 20131217
  Receipt Date: 20140306
  Transmission Date: 20141002
  Serious: Yes (Other)
  Sender: FDA-Public Use
  Company Number: 20130706

PATIENT
  Age: 92 Year
  Sex: Male
  Weight: 110 kg

DRUGS (1)
  1. FERINJECT [Suspect]
     Indication: PRODUCT USED FOR UNKNOWN INDICATION
     Dosage: 1 IN 1 TOTAL
     Route: 042
     Dates: start: 20131107, end: 20131107

REACTIONS (1)
  - Faeces discoloured [None]
